FAERS Safety Report 8103724-8 (Version None)
Quarter: 2012Q1

REPORT INFORMATION
  Report Type: 
  Country: None (occurrence: None)
  Receive Date: 20120201
  Receipt Date: 20120126
  Transmission Date: 20120608
  Serious: Yes (Death, Life-Threatening, Hospitalization)
  Sender: FDA-Public Use
  Company Number: PHHO2008KR06307

PATIENT
  Sex: Male
  Weight: 67 kg

DRUGS (1)
  1. GILENYA [Suspect]
     Indication: MULTIPLE SCLEROSIS
     Dosage: 1.25 MG, QD
     Dates: start: 20070611, end: 20080513

REACTIONS (20)
  - COMA [None]
  - ENCEPHALITIS HERPES [None]
  - PARTIAL SEIZURES [None]
  - ELECTROENCEPHALOGRAM ABNORMAL [None]
  - DIZZINESS [None]
  - UPPER RESPIRATORY TRACT INFECTION [None]
  - GRAND MAL CONVULSION [None]
  - CSF PRESSURE INCREASED [None]
  - PYREXIA [None]
  - HYPERVENTILATION [None]
  - PARTIAL SEIZURES WITH SECONDARY GENERALISATION [None]
  - HEADACHE [None]
  - PNEUMONIA ASPIRATION [None]
  - DEPRESSED LEVEL OF CONSCIOUSNESS [None]
  - MECHANICAL VENTILATION [None]
  - AREFLEXIA [None]
  - BRAIN OEDEMA [None]
  - CSF PROTEIN INCREASED [None]
  - UNRESPONSIVE TO STIMULI [None]
  - INTRACRANIAL PRESSURE INCREASED [None]
